FAERS Safety Report 12609768 (Version 1)
Quarter: 2016Q3

REPORT INFORMATION
  Report Type: Report from Study
  Country: US (occurrence: US)
  Receive Date: 20160801
  Receipt Date: 20160801
  Transmission Date: 20161109
  Serious: Yes (Other)
  Sender: FDA-Public Use
  Company Number: US-CIPLA LTD.-2016US10113

PATIENT

DRUGS (3)
  1. IRINOTECAN [Suspect]
     Active Substance: IRINOTECAN
     Indication: OESOPHAGEAL CARCINOMA
     Dosage: 65 MG/M2, ON WEEKS 1, 2, 4, AND 5
     Route: 065
  2. CISPLATIN. [Suspect]
     Active Substance: CISPLATIN
     Indication: OESOPHAGEAL CARCINOMA
     Dosage: 30 MG/M2, ON WEEKS 1, 2, 4, AND 5
     Route: 042
  3. CELECOXIB. [Suspect]
     Active Substance: CELECOXIB
     Indication: OESOPHAGEAL CARCINOMA
     Dosage: 400 MG, BID
     Route: 048

REACTIONS (3)
  - Oesophageal carcinoma recurrent [Unknown]
  - Metastasis [Unknown]
  - Lymphadenopathy [Unknown]
